FAERS Safety Report 8389023-8 (Version None)
Quarter: 2012Q2

REPORT INFORMATION
  Report Type: 
  Country: None (occurrence: None)
  Receive Date: 20120528
  Receipt Date: 20120521
  Transmission Date: 20120825
  Serious: No
  Sender: FDA-Public Use
  Company Number: US-PFIZER INC-2012120168

PATIENT
  Sex: Male

DRUGS (4)
  1. LETAIRIS [Suspect]
     Indication: PULMONARY HYPERTENSION
     Dosage: 10 MG, UNK
     Route: 048
     Dates: start: 20071217
  2. REVATIO [Suspect]
     Dosage: UNK
  3. LETAIRIS [Suspect]
     Indication: SLEEP APNOEA SYNDROME
  4. NORVASC [Suspect]
     Dosage: UNK

REACTIONS (1)
  - DIZZINESS [None]
